FAERS Safety Report 21535049 (Version 1)
Quarter: 2022Q4

REPORT INFORMATION
  Report Type: Spontaneous
  Country: US (occurrence: None)
  Receive Date: 20221031
  Receipt Date: 20221031
  Transmission Date: 20230113
  Serious: No
  Sender: FDA-Public Use
  Company Number: None

PATIENT
  Age: 33 Year
  Sex: Female
  Weight: 51.75 kg

DRUGS (8)
  1. METHYLPHENIDATE [Suspect]
     Active Substance: METHYLPHENIDATE
     Indication: Narcolepsy
     Dosage: OTHER QUANTITY : 1 TABLET(S);?
     Route: 048
     Dates: start: 20221014
  2. METHYLPHENIDATE [Suspect]
     Active Substance: METHYLPHENIDATE
     Indication: Attention deficit hyperactivity disorder
  3. PROPRANOLOL [Concomitant]
     Active Substance: PROPRANOLOL HYDROCHLORIDE
  4. AMBIEN [Concomitant]
     Active Substance: ZOLPIDEM TARTRATE
  5. METHIMAZOLE [Concomitant]
     Active Substance: METHIMAZOLE
  6. PEPCID [Concomitant]
     Active Substance: FAMOTIDINE
  7. CLARITIN [Concomitant]
     Active Substance: LORATADINE
  8. MAGNESIUM GLYCINATE [Concomitant]

REACTIONS (8)
  - Fatigue [None]
  - Heart rate increased [None]
  - Blood pressure increased [None]
  - Crying [None]
  - Tremor [None]
  - Feeling drunk [None]
  - Product substitution issue [None]
  - Confusional state [None]

NARRATIVE: CASE EVENT DATE: 20221026
